FAERS Safety Report 4345325-3 (Version None)
Quarter: 2004Q2

REPORT INFORMATION
  Report Type: 
  Country: None (occurrence: None)
  Receive Date: 20040422
  Receipt Date: 20040422
  Transmission Date: 20050107
  Serious: Yes (Hospitalization)
  Sender: FDA-Public Use
  Company Number: None

PATIENT
  Age: 55 Year
  Sex: Female
  Weight: 39.5 kg

DRUGS (11)
  1. GLEEVEC [Suspect]
     Indication: LUNG CANCER METASTATIC
     Dosage: 400 MG 4 DAYS/WE ORAL
     Route: 048
     Dates: start: 20040113, end: 20040416
  2. PACLITAXEL [Suspect]
     Dosage: 109.6MG Q X3 WEEK INTRAVENOUS
     Route: 042
     Dates: start: 20040115, end: 20040408
  3. LOVOXYL [Concomitant]
  4. HYDROCHLOROTHIAZIDE [Concomitant]
  5. DILANTIN [Concomitant]
  6. KYTRIL [Concomitant]
  7. ATIVAN [Concomitant]
  8. VIOXX [Concomitant]
  9. MARINOL [Concomitant]
  10. TRAZODONE HCL [Concomitant]
  11. PREDNISONE [Concomitant]

REACTIONS (4)
  - ASTHENIA [None]
  - DISEASE PROGRESSION [None]
  - FATIGUE [None]
  - METASTASES TO CENTRAL NERVOUS SYSTEM [None]
